FAERS Safety Report 9609992 (Version 2)
Quarter: 2013Q4

REPORT INFORMATION
  Report Type: Spontaneous
  Country: US (occurrence: US)
  Receive Date: 20131009
  Receipt Date: 20131009
  Transmission Date: 20140711
  Serious: No
  Sender: FDA-Public Use
  Company Number: US-PURDUE-USA-2012-0095798

PATIENT
  Sex: Female

DRUGS (2)
  1. BUTRANS [Suspect]
     Indication: FIBROMYALGIA
     Dosage: 10 MCG, UNK
     Route: 062
     Dates: start: 2012
  2. BUTRANS [Suspect]
     Dosage: 20 MCG, UNK
     Route: 062
     Dates: start: 20121113, end: 20121117

REACTIONS (4)
  - Drug ineffective [Recovered/Resolved]
  - Application site erythema [Not Recovered/Not Resolved]
  - Application site pruritus [Not Recovered/Not Resolved]
  - Application site pain [Not Recovered/Not Resolved]
